FAERS Safety Report 8090676 (Version 4)
Quarter: 2020Q3

REPORT INFORMATION
  Report Type: Report from Study
  Country: DE (occurrence: DE)
  Receive Date: 20110815
  Receipt Date: 20111027
  Transmission Date: 20201105
  Serious: Yes (Hospitalization)
  Sender: FDA-Public Use
  Company Number: DE-JNJFOC-20110803985

PATIENT
  Age: 61 Year
  Sex: Male
  Weight: 94.5 kg

DRUGS (4)
  1. LERCANIDIPINE [Concomitant]
     Active Substance: LERCANIDIPINE
     Route: 048
     Dates: start: 20090203
  2. USTEKINUMAB [Suspect]
     Active Substance: USTEKINUMAB
     Indication: PSORIASIS
     Route: 058
     Dates: start: 20060720
  3. USTEKINUMAB [Suspect]
     Active Substance: USTEKINUMAB
     Route: 058
     Dates: start: 20110324
  4. ACETYLSALICYLIC ACID [Concomitant]
     Active Substance: ASPIRIN
     Route: 048
     Dates: start: 2004

REACTIONS (1)
  - Anal abscess [Recovered/Resolved]

NARRATIVE: CASE EVENT DATE: 20110711
